FAERS Safety Report 23906783 (Version 2)
Quarter: 2025Q1

REPORT INFORMATION
  Report Type: Spontaneous
  Country: CA (occurrence: CA)
  Receive Date: 20240528
  Receipt Date: 20250211
  Transmission Date: 20250409
  Serious: Yes (Other)
  Sender: TAKEDA
  Company Number: CA-TAKEDA-2024TUS051881

PATIENT
  Age: 15 Year
  Sex: Female

DRUGS (2)
  1. PANTOPRAZOLE [Suspect]
     Active Substance: PANTOPRAZOLE
     Indication: Suicide attempt
  2. COLCHICINE [Suspect]
     Active Substance: COLCHICINE
     Indication: Suicide attempt

REACTIONS (8)
  - Multiple organ dysfunction syndrome [Recovering/Resolving]
  - Hepatic function abnormal [Recovered/Resolved]
  - Coagulopathy [Recovered/Resolved]
  - Lactic acidosis [Recovering/Resolving]
  - Toxicity to various agents [Unknown]
  - Leukocytosis [Unknown]
  - Pancytopenia [Not Recovered/Not Resolved]
  - Intentional overdose [Unknown]
